FAERS Safety Report 25771334 (Version 1)
Quarter: 2025Q3

REPORT INFORMATION
  Report Type: Spontaneous
  Country: US (occurrence: US)
  Receive Date: 20250908
  Receipt Date: 20250908
  Transmission Date: 20251020
  Serious: No
  Sender: DOMPE FARMACEUTICI
  Company Number: US-FARMAPROD-202504-1202

PATIENT
  Sex: Male
  Weight: 120.66 kg

DRUGS (29)
  1. OXERVATE [Suspect]
     Active Substance: CENEGERMIN-BKBJ
     Indication: Neurotrophic keratopathy
     Route: 047
     Dates: start: 20250305
  2. PROBIOTICS NOS [Concomitant]
     Active Substance: PROBIOTICS NOS
  3. SIMPONI ARIA [Concomitant]
     Active Substance: GOLIMUMAB
  4. D3-5000 [Concomitant]
  5. FARXIGA [Concomitant]
     Active Substance: DAPAGLIFLOZIN PROPANEDIOL
  6. TYLENOL 8HR [Concomitant]
     Active Substance: ACETAMINOPHEN
  7. POTASSIUM CITRATE [Concomitant]
     Active Substance: POTASSIUM CITRATE
  8. METHYLPREDNISOLONE [Concomitant]
     Active Substance: METHYLPREDNISOLONE
  9. NYSTATIN [Concomitant]
     Active Substance: NYSTATIN
  10. ZINC [Concomitant]
     Active Substance: ZINC
  11. CALTRATE-D3 PLUS MINERALS [Concomitant]
  12. SYSTANE (HYPROMELLOSE 2910 (4000 MPA.S)) [Concomitant]
     Active Substance: HYPROMELLOSE 2910 (4000 MPA.S)
  13. VITAMIN D3 [Concomitant]
     Active Substance: CHOLECALCIFEROL
  14. ALLOPURINOL [Concomitant]
     Active Substance: ALLOPURINOL
  15. TAMSULOSIN HYDROCHLORIDE [Concomitant]
     Active Substance: TAMSULOSIN HYDROCHLORIDE
  16. ALLOPURINOL [Concomitant]
     Active Substance: ALLOPURINOL
  17. GABAPENTIN [Concomitant]
     Active Substance: GABAPENTIN
  18. GALZIN [Concomitant]
     Active Substance: ZINC ACETATE
  19. XARELTO [Concomitant]
     Active Substance: RIVAROXABAN
  20. OMEPRAZOLE [Concomitant]
     Active Substance: OMEPRAZOLE
  21. METFORMIN HYDROCHLORIDE [Concomitant]
     Active Substance: METFORMIN HYDROCHLORIDE
  22. FUROSEMIDE [Concomitant]
     Active Substance: FUROSEMIDE
  23. ATORVASTATIN CALCIUM [Concomitant]
     Active Substance: ATORVASTATIN CALCIUM
  24. ROPINIROLE HYDROCHLORIDE [Concomitant]
     Active Substance: ROPINIROLE HYDROCHLORIDE
  25. ALCOHOL PREP PADS [Concomitant]
     Active Substance: ISOPROPYL ALCOHOL
  26. RESTASIS [Concomitant]
     Active Substance: CYCLOSPORINE
  27. FERROUS GLUCONATE [Concomitant]
     Active Substance: FERROUS GLUCONATE
  28. AREDS 2 PESERVISION AM-PM [Concomitant]
  29. HERBALS\SAW PALMETTO [Concomitant]
     Active Substance: HERBALS\SAW PALMETTO

REACTIONS (3)
  - Eye irritation [Not Recovered/Not Resolved]
  - Eye pain [Not Recovered/Not Resolved]
  - Foreign body sensation in eyes [Unknown]
